FAERS Safety Report 4347893-4 (Version None)
Quarter: 2004Q2

REPORT INFORMATION
  Report Type: 
  Country: None (occurrence: None)
  Receive Date: 20040422
  Receipt Date: 20040419
  Transmission Date: 20050107
  Serious: Yes (Disabling)
  Sender: FDA-Public Use
  Company Number: HQ5425420NOV2002

PATIENT
  Age: 22 Year
  Sex: Female

DRUGS (2)
  1. DIMETAPP [Suspect]
     Indication: SINUS DISORDER
     Dosage: RECOMMENDED DOSAGE, ORAL
     Route: 048
     Dates: start: 19920629
  2. DEXATRIM (CAFFEINE/PHENYLPROPANOLAMINE HYDROCHLORIDE) [Suspect]
     Dosage: RECOMMENDED DOSAGE, ORAL
     Route: 048
     Dates: start: 19920629

REACTIONS (6)
  - CEREBROVASCULAR ACCIDENT [None]
  - CONVULSION [None]
  - DIZZINESS [None]
  - HEADACHE [None]
  - INCOHERENT [None]
  - SYNCOPE [None]
